FAERS Safety Report 11741125 (Version 1)
Quarter: 2015Q4

REPORT INFORMATION
  Report Type: Spontaneous
  Country: US (occurrence: US)
  Receive Date: 20151116
  Receipt Date: 20151116
  Transmission Date: 20160304
  Serious: No
  Sender: FDA-Public Use
  Company Number: US-B.I. PHARMACEUTICALS,INC./RIDGEFIELD-2015-BI-61283BP

PATIENT
  Age: 68 Year
  Sex: Female

DRUGS (5)
  1. PROMETRIUM PROGESTERONE SUPPLEMENT [Concomitant]
     Indication: UTERINE CANCER
     Dosage: 200 MG
     Route: 048
     Dates: start: 2000
  2. DOXYCYCLINE. [Concomitant]
     Active Substance: DOXYCYCLINE
     Indication: ROSACEA
     Dosage: 25 MG
     Route: 048
     Dates: start: 2012
  3. MICARDIS [Suspect]
     Active Substance: TELMISARTAN
     Dosage: 60 MG
     Route: 048
     Dates: start: 20151101
  4. MICARDIS [Suspect]
     Active Substance: TELMISARTAN
     Indication: HYPERTENSION
     Dosage: 20 MG
     Route: 048
     Dates: start: 20150904, end: 20151004
  5. MICARDIS [Suspect]
     Active Substance: TELMISARTAN
     Dosage: 40 MG
     Route: 048
     Dates: start: 20151004, end: 20151031

REACTIONS (2)
  - Drug ineffective [Recovered/Resolved]
  - Dizziness [Recovered/Resolved]

NARRATIVE: CASE EVENT DATE: 20150904
